FAERS Safety Report 18769725 (Version 1)
Quarter: 2021Q1

REPORT INFORMATION
  Report Type: Spontaneous
  Country: CN (occurrence: CN)
  Receive Date: 20210121
  Receipt Date: 20210121
  Transmission Date: 20210419
  Serious: Yes (Other)
  Sender: FDA-Public Use
  Company Number: CN-ASTRAZENECA-2021A008996

PATIENT
  Age: 21185 Day
  Sex: Female
  Weight: 65 kg

DRUGS (3)
  1. SODIUM CHLORIDE. [Concomitant]
     Active Substance: SODIUM CHLORIDE
     Indication: VOCAL CORD INFLAMMATION
     Route: 055
     Dates: start: 20210104, end: 20210105
  2. SODIUM RABEPRAZOLE [Concomitant]
     Active Substance: RABEPRAZOLE SODIUM
     Indication: GASTROOESOPHAGEAL REFLUX DISEASE
     Route: 048
     Dates: start: 20210104, end: 20210106
  3. PULMICORT RESPULES [Suspect]
     Active Substance: BUDESONIDE
     Indication: VOCAL CORD INFLAMMATION
     Route: 055
     Dates: start: 20210104, end: 20210105

REACTIONS (4)
  - Abdominal distension [Recovered/Resolved]
  - Gastrooesophageal reflux disease [Recovered/Resolved]
  - Discomfort [Recovering/Resolving]
  - Retching [Recovered/Resolved]

NARRATIVE: CASE EVENT DATE: 20210104
